FAERS Safety Report 14878859 (Version 2)
Quarter: 2018Q4

REPORT INFORMATION
  Report Type: Spontaneous
  Country: FR (occurrence: FR)
  Receive Date: 20180511
  Receipt Date: 20181026
  Transmission Date: 20190204
  Serious: Yes (Other)
  Sender: FDA-Public Use
  Company Number: FR-MERCK KGAA-2047601

PATIENT
  Age: 43 Year
  Sex: Female
  Weight: 74 kg

DRUGS (1)
  1. EUTHYROX [Suspect]
     Active Substance: LEVOTHYROXINE SODIUM
     Indication: PRODUCT USED FOR UNKNOWN INDICATION

REACTIONS (24)
  - Feeling of despair [None]
  - Apathy [None]
  - Alopecia [None]
  - Eructation [None]
  - Anxiety [None]
  - Depression [None]
  - Decreased interest [None]
  - Maternal exposure during pregnancy [Recovered/Resolved]
  - Irritability [None]
  - Nausea [None]
  - Malaise [None]
  - Impaired quality of life [None]
  - Thyroxine free increased [None]
  - Insomnia [None]
  - Headache [None]
  - Abortion spontaneous [Recovered/Resolved]
  - Weight increased [None]
  - Fatigue [None]
  - Tri-iodothyronine decreased [None]
  - Mood swings [None]
  - Gastrointestinal disorder [None]
  - Anti-thyroid antibody positive [None]
  - Arthralgia [None]
  - Blood thyroid stimulating hormone decreased [None]

NARRATIVE: CASE EVENT DATE: 201706
